FAERS Safety Report 19894300 (Version 1)
Quarter: 2021Q3

REPORT INFORMATION
  Report Type: Spontaneous
  Country: US (occurrence: US)
  Receive Date: 20210928
  Receipt Date: 20210928
  Transmission Date: 20211014
  Serious: Yes (Other)
  Sender: FDA-Public Use
  Company Number: US-CELGENEUS-USA-20210906339

PATIENT

DRUGS (6)
  1. INDATUXIMAB RAVTANSINE [Concomitant]
     Active Substance: INDATUXIMAB RAVTANSINE
     Route: 065
  2. POMALYST [Suspect]
     Active Substance: POMALIDOMIDE
     Indication: PLASMA CELL MYELOMA
     Route: 048
  3. LENALIDOMIDE [Suspect]
     Active Substance: LENALIDOMIDE
     Indication: PLASMA CELL MYELOMA
     Dosage: 25 MILLIGRAM
     Route: 048
  4. DEXAMETHASONE. [Suspect]
     Active Substance: DEXAMETHASONE
     Indication: PLASMA CELL MYELOMA
     Dosage: 20?40 MG
     Route: 065
  5. INDATUXIMAB RAVTANSINE [Concomitant]
     Active Substance: INDATUXIMAB RAVTANSINE
     Indication: PRODUCT USED FOR UNKNOWN INDICATION
     Route: 065
  6. INDATUXIMAB RAVTANSINE [Concomitant]
     Active Substance: INDATUXIMAB RAVTANSINE
     Route: 065

REACTIONS (1)
  - Peripheral sensory neuropathy [Unknown]
